FAERS Safety Report 7570275-9 (Version None)
Quarter: 2011Q2

REPORT INFORMATION
  Report Type: 
  Country: None (occurrence: None)
  Receive Date: 20110622
  Receipt Date: 20110622
  Transmission Date: 20111010
  Serious: No
  Sender: FDA-Public Use
  Company Number: None

PATIENT
  Age: 67 Year
  Sex: Female

DRUGS (1)
  1. FLONASE [Suspect]
     Indication: RHINITIS ALLERGIC
     Dosage: 2 SPRAYS QD EACH NOSTRIL
     Route: 045
     Dates: start: 20110110, end: 20110510

REACTIONS (3)
  - NASAL DISCOMFORT [None]
  - DRUG INEFFECTIVE [None]
  - THROAT IRRITATION [None]
